FAERS Safety Report 4975346-9 (Version None)
Quarter: 2006Q2

REPORT INFORMATION
  Report Type: 
  Country: None (occurrence: None)
  Receive Date: 20060418
  Receipt Date: 20051026
  Transmission Date: 20061013
  Serious: Yes (Death, Hospitalization, Other)
  Sender: FDA-Public Use
  Company Number: US-MERCK-0510USA09475

PATIENT
  Age: 84 Year
  Sex: Female

DRUGS (2)
  1. VIOXX [Suspect]
     Route: 048
  2. DURAGESIC-100 [Concomitant]
     Indication: PAIN
     Route: 065

REACTIONS (12)
  - ANAEMIA [None]
  - AZOTAEMIA [None]
  - CARDIAC FAILURE CONGESTIVE [None]
  - CARDIOVASCULAR DISORDER [None]
  - COLLAPSE OF LUNG [None]
  - DEATH [None]
  - FAILURE TO THRIVE [None]
  - ISCHAEMIC STROKE [None]
  - MALNUTRITION [None]
  - PAIN [None]
  - PLEURAL EFFUSION [None]
  - RESPIRATORY ARREST [None]
